APPROVED DRUG PRODUCT: GIAZO
Active Ingredient: BALSALAZIDE DISODIUM
Strength: 1.1GM **Federal Register determination that product was not discontinued or withdrawn for safety or effectiveness reasons**
Dosage Form/Route: TABLET;ORAL
Application: N022205 | Product #001
Applicant: VALEANT PHARMACEUTICALS INTERNATIONAL
Approved: Feb 3, 2012 | RLD: Yes | RS: No | Type: DISCN

PATENTS:
Patent 7452872 | Expires: Aug 24, 2026
Patent 7625884 | Expires: Aug 24, 2026
Patent 9192616 | Expires: Aug 2, 2026
Patent 8497256 | Expires: Jun 23, 2031